FAERS Safety Report 9810954 (Version 17)
Quarter: 2015Q4

REPORT INFORMATION
  Report Type: Spontaneous
  Country: US (occurrence: US)
  Receive Date: 20140110
  Receipt Date: 20151112
  Transmission Date: 20160305
  Serious: Yes (Other)
  Sender: FDA-Public Use
  Company Number: US-SANOFI-AVENTIS-2013SA003931

PATIENT
  Age: 54 Year
  Sex: Male
  Weight: 86.63 kg

DRUGS (43)
  1. TORSEMIDE. [Concomitant]
     Active Substance: TORSEMIDE
  2. PHENYTOIN. [Concomitant]
     Active Substance: PHENYTOIN
     Route: 065
  3. PROCARDIA [Concomitant]
     Active Substance: NIFEDIPINE
     Dosage: STRENGTH: 90MG
     Route: 048
  4. ENALAPRIL [Concomitant]
     Active Substance: ENALAPRIL
     Route: 048
  5. LOVENOX [Concomitant]
     Active Substance: ENOXAPARIN SODIUM
     Route: 058
  6. PLAVIX [Suspect]
     Active Substance: CLOPIDOGREL BISULFATE
     Route: 048
     Dates: start: 20110226, end: 20111116
  7. AVAPRO [Concomitant]
     Active Substance: IRBESARTAN
  8. PRILOSEC [Concomitant]
     Active Substance: OMEPRAZOLE MAGNESIUM
  9. RESTORIL [Concomitant]
     Active Substance: TEMAZEPAM
  10. MORPHINE [Concomitant]
     Active Substance: MORPHINE
     Indication: PAIN IN EXTREMITY
     Route: 042
  11. FUROSEMIDE. [Concomitant]
     Active Substance: FUROSEMIDE
     Indication: POLYURIA
     Route: 042
  12. METOPROLOL [Concomitant]
     Active Substance: METOPROLOL
  13. METOPROLOL [Concomitant]
     Active Substance: METOPROLOL
     Dosage: STRENGTH: 50 MG
     Route: 048
  14. LOSARTAN. [Concomitant]
     Active Substance: LOSARTAN
     Route: 048
  15. NEURONTIN [Concomitant]
     Active Substance: GABAPENTIN
  16. CARAFATE [Concomitant]
     Active Substance: SUCRALFATE
     Dosage: DOSE:100 MILLIGRAM(S)/MILLILITRE
  17. GLIPIZIDE. [Concomitant]
     Active Substance: GLIPIZIDE
     Indication: DIABETES MELLITUS
     Dosage: STRENGTH: 10 MG
     Route: 048
  18. ENALAPRIL [Concomitant]
     Active Substance: ENALAPRIL
     Dosage: STRENGTH: 20 MG
     Route: 048
  19. NOVOLOG [Concomitant]
     Active Substance: INSULIN ASPART
     Indication: DIABETES MELLITUS
     Dosage: 100 UNIT/ML
     Route: 058
  20. JANUVIA [Concomitant]
     Active Substance: SITAGLIPTIN PHOSPHATE
  21. AMLODIPINE [Concomitant]
     Active Substance: AMLODIPINE BESYLATE
     Dosage: BY MOUTH
     Route: 048
  22. PROCRIT [Concomitant]
     Active Substance: ERYTHROPOIETIN
     Dosage: 10000UNIT/ML
     Route: 058
  23. CALCITRIOL. [Concomitant]
     Active Substance: CALCITRIOL
     Route: 065
  24. SIMVASTATIN. [Concomitant]
     Active Substance: SIMVASTATIN
     Dosage: QPM
     Route: 065
  25. METOLAZONE. [Concomitant]
     Active Substance: METOLAZONE
     Indication: DIABETES MELLITUS
  26. LOPRESSOR [Concomitant]
     Active Substance: METOPROLOL TARTRATE
     Route: 048
  27. ASPIRIN. [Suspect]
     Active Substance: ASPIRIN
     Route: 065
  28. VIAGRA [Concomitant]
     Active Substance: SILDENAFIL CITRATE
     Indication: ERECTILE DYSFUNCTION
  29. LOVASTATIN. [Concomitant]
     Active Substance: LOVASTATIN
     Route: 048
  30. METOPROLOL [Concomitant]
     Active Substance: METOPROLOL
     Dosage: DOSE 50
     Route: 048
  31. OMEPRAZOLE. [Concomitant]
     Active Substance: OMEPRAZOLE
     Route: 048
  32. ALLOPURINOL. [Concomitant]
     Active Substance: ALLOPURINOL
     Route: 048
  33. PHENYTOIN SODIUM. [Concomitant]
     Active Substance: PHENYTOIN SODIUM
     Route: 048
  34. LISINOPRIL. [Concomitant]
     Active Substance: LISINOPRIL
  35. FUROSEMIDE. [Concomitant]
     Active Substance: FUROSEMIDE
     Indication: POLYURIA
     Dosage: DOSE 120
     Route: 048
  36. DILANTIN [Concomitant]
     Active Substance: PHENYTOIN
     Route: 048
  37. HYDRALAZINE [Concomitant]
     Active Substance: HYDRALAZINE HYDROCHLORIDE
     Dosage: STRENGTH: 25 MG
     Route: 048
  38. FUROSEMIDE. [Concomitant]
     Active Substance: FUROSEMIDE
     Indication: POLYURIA
  39. LACTULOSE. [Concomitant]
     Active Substance: LACTULOSE
  40. ROBITUSSIN (GUAIFENESIN) [Concomitant]
     Active Substance: GUAIFENESIN
     Indication: COUGH
     Dosage: STRENGTH: 200MG
     Route: 048
  41. BACTRIM [Concomitant]
     Active Substance: SULFAMETHOXAZOLE\TRIMETHOPRIM
     Route: 048
  42. VASOTEC [Concomitant]
     Active Substance: ENALAPRIL MALEATE
     Route: 048
  43. LOVENOX [Concomitant]
     Active Substance: ENOXAPARIN SODIUM

REACTIONS (3)
  - Multiple injuries [Unknown]
  - Anaemia [Unknown]
  - Gastrointestinal haemorrhage [Unknown]

NARRATIVE: CASE EVENT DATE: 201102
